FAERS Safety Report 10576161 (Version 1)
Quarter: 2014Q4

REPORT INFORMATION
  Report Type: Spontaneous
  Country: US (occurrence: None)
  Receive Date: 20141110
  Receipt Date: 20141110
  Transmission Date: 20150529
  Serious: Yes (Other)
  Sender: FDA-Public Use
  Company Number: None

PATIENT
  Age: 69 Year
  Sex: Female
  Weight: 65.77 kg

DRUGS (1)
  1. MONTELUKAST [Suspect]
     Active Substance: MONTELUKAST SODIUM
     Indication: ALLERGIC COUGH
     Dosage: SINGULAIR
     Route: 048
     Dates: start: 20140701, end: 20141104

REACTIONS (5)
  - Drug ineffective [None]
  - Product substitution issue [None]
  - Cough [None]
  - Wheezing [None]
  - Therapeutic response changed [None]

NARRATIVE: CASE EVENT DATE: 20141015
